FAERS Safety Report 4948144-X (Version None)
Quarter: 2006Q1

REPORT INFORMATION
  Report Type: 
  Country: None (occurrence: None)
  Receive Date: 20060320
  Receipt Date: 20050614
  Transmission Date: 20060701
  Serious: Yes (Death, Hospitalization)
  Sender: FDA-Public Use
  Company Number: PHBS2005JP08497

PATIENT
  Age: 76 Year
  Sex: Male

DRUGS (26)
  1. PRIMPERAN TAB [Concomitant]
     Route: 042
  2. GASTER D [Concomitant]
     Route: 048
  3. LEUKOVORIN DABUR [Concomitant]
     Route: 048
  4. BACTRIM [Concomitant]
  5. OZEX [Concomitant]
  6. LOXONIN [Concomitant]
  7. MUCOSTA [Concomitant]
  8. CARBENIN [Concomitant]
  9. ISEPACIN [Concomitant]
  10. MODACIN [Concomitant]
  11. ALLELOCK [Concomitant]
  12. LACSPAN [Concomitant]
  13. LAC B [Concomitant]
  14. ADRIACIN [Concomitant]
  15. DECADRON SRC [Concomitant]
  16. CYLOCIDE [Concomitant]
  17. SELBEX [Concomitant]
  18. DEPAS [Concomitant]
  19. MAGMITT KENEI [Concomitant]
  20. GLEEVEC [Suspect]
     Indication: ACUTE LYMPHOCYTIC LEUKAEMIA
     Dosage: 400 MG/DAY
     Route: 048
     Dates: start: 20050407, end: 20050421
  21. GLEEVEC [Suspect]
     Dosage: 200 MG/D
     Route: 048
     Dates: start: 20050601, end: 20050614
  22. GLEEVEC [Suspect]
     Dosage: 200 MG/D
     Route: 048
     Dates: start: 20050628, end: 20050702
  23. ENDOXAN [Concomitant]
     Dates: start: 20050401
  24. DAUNOMYCIN [Concomitant]
     Dates: start: 20050401
  25. ONCOVIN [Concomitant]
     Dates: start: 20050401
  26. METHOTREXATE [Concomitant]

REACTIONS (13)
  - ABDOMINAL PAIN UPPER [None]
  - ALANINE AMINOTRANSFERASE INCREASED [None]
  - ASPARTATE AMINOTRANSFERASE INCREASED [None]
  - BLOOD ALKALINE PHOSPHATASE INCREASED [None]
  - BLOOD BILIRUBIN INCREASED [None]
  - BLOOD LACTATE DEHYDROGENASE INCREASED [None]
  - BREAST DISORDER [None]
  - GAMMA-GLUTAMYLTRANSFERASE INCREASED [None]
  - HEPATITIS [None]
  - NIPPLE PAIN [None]
  - NIPPLE SWELLING [None]
  - PRURITUS [None]
  - SEPTIC SHOCK [None]
